FAERS Safety Report 13863457 (Version 2)
Quarter: 2017Q3

REPORT INFORMATION
  Report Type: Spontaneous
  Country: US (occurrence: US)
  Receive Date: 20170814
  Receipt Date: 20170822
  Transmission Date: 20171127
  Serious: No
  Sender: FDA-Public Use
  Company Number: US-PFIZER INC-2017345209

PATIENT
  Age: 80 Year
  Sex: Female

DRUGS (14)
  1. AVAPRO [Suspect]
     Active Substance: IRBESARTAN
     Dosage: UNK
  2. LEXAPRO [Suspect]
     Active Substance: ESCITALOPRAM OXALATE
     Dosage: UNK
  3. MIACALCIN [Suspect]
     Active Substance: CALCITONIN SALMON
     Dosage: UNK
  4. PLAQUENIL [Suspect]
     Active Substance: HYDROXYCHLOROQUINE SULFATE
     Dosage: UNK
  5. SALSALATE. [Suspect]
     Active Substance: SALSALATE
     Dosage: UNK
  6. ARAVA [Suspect]
     Active Substance: LEFLUNOMIDE
     Dosage: UNK
  7. ENBREL [Suspect]
     Active Substance: ETANERCEPT
     Dosage: UNK
  8. PRINIVIL [Suspect]
     Active Substance: LISINOPRIL
     Dosage: UNK
  9. DISALCID [Suspect]
     Active Substance: SALSALATE
     Dosage: UNK
  10. MEDROL [Suspect]
     Active Substance: METHYLPREDNISOLONE
     Dosage: UNK
  11. METHOTREXATE SODIUM. [Suspect]
     Active Substance: METHOTREXATE SODIUM
     Dosage: UNK
  12. REGLAN [Suspect]
     Active Substance: METOCLOPRAMIDE HYDROCHLORIDE
     Dosage: UNK
  13. VIOXX [Suspect]
     Active Substance: ROFECOXIB
     Dosage: UNK
  14. FORTEO [Suspect]
     Active Substance: TERIPARATIDE
     Dosage: UNK

REACTIONS (1)
  - Drug hypersensitivity [Unknown]
